FAERS Safety Report 25010042 (Version 1)
Quarter: 2025Q1

REPORT INFORMATION
  Report Type: Spontaneous
  Country: US (occurrence: None)
  Receive Date: 20250225
  Receipt Date: 20250225
  Transmission Date: 20250409
  Serious: Yes (Hospitalization)
  Sender: FDA-CTU
  Company Number: None

PATIENT
  Age: 31 Year
  Sex: Female

DRUGS (13)
  1. XOLAIR [Suspect]
     Active Substance: OMALIZUMAB
     Indication: Urticaria
     Route: 058
     Dates: start: 20240515
  2. SUMATRIPTAN [Suspect]
     Active Substance: SUMATRIPTAN
  3. BUPROPION [Suspect]
     Active Substance: BUPROPION
  4. ACID REDUCER [Concomitant]
  5. DESENLAFAX [Concomitant]
  6. KENALOG [Concomitant]
     Active Substance: TRIAMCINOLONE ACETONIDE
  7. KETOROLAC [Concomitant]
     Active Substance: KETOROLAC TROMETHAMINE
  8. MECLIZINE CHW [Concomitant]
  9. MELOXICAM [Concomitant]
     Active Substance: MELOXICAM
  10. PEPCID [Concomitant]
     Active Substance: FAMOTIDINE
  11. PRISTIQ EXTENDED-RELEASE [Concomitant]
     Active Substance: DESVENLAFAXINE SUCCINATE
  12. PROPRANOLOL [Concomitant]
     Active Substance: PROPRANOLOL HYDROCHLORIDE
  13. UBRELVY [Concomitant]
     Active Substance: UBROGEPANT

REACTIONS (2)
  - Sepsis [None]
  - Drug hypersensitivity [None]

NARRATIVE: CASE EVENT DATE: 20250103
